FAERS Safety Report 20968671 (Version 1)
Quarter: 2022Q2

REPORT INFORMATION
  Report Type: Spontaneous
  Country: US (occurrence: None)
  Receive Date: 20220616
  Receipt Date: 20220616
  Transmission Date: 20220720
  Serious: Yes (Life-Threatening)
  Sender: FDA-Public Use
  Company Number: None

PATIENT
  Age: 42 Year
  Sex: Female
  Weight: 60.75 kg

DRUGS (5)
  1. QUETIAPINE FUMARATE [Suspect]
     Active Substance: QUETIAPINE FUMARATE
     Indication: Insomnia
  2. FLUVOXAMINE [Concomitant]
     Active Substance: FLUVOXAMINE
  3. Bupripion [Concomitant]
  4. Adzenyz [Concomitant]
  5. VITAMIN D [Concomitant]
     Active Substance: VITAMIN D NOS

REACTIONS (9)
  - Suicidal ideation [None]
  - Thinking abnormal [None]
  - Body temperature fluctuation [None]
  - Hyperhidrosis [None]
  - Dizziness [None]
  - Confusional state [None]
  - Tremor [None]
  - Restlessness [None]
  - Anxiety [None]

NARRATIVE: CASE EVENT DATE: 20220607
